FAERS Safety Report 22006039 (Version 1)
Quarter: 2023Q1

REPORT INFORMATION
  Report Type: Spontaneous
  Country: CN (occurrence: None)
  Receive Date: 20230217
  Receipt Date: 20230217
  Transmission Date: 20230417
  Serious: Yes (Other)
  Sender: FDA-Public Use
  Company Number: 2023A036457

PATIENT
  Age: 24275 Day
  Sex: Female

DRUGS (1)
  1. DAPAGLIFLOZIN [Suspect]
     Active Substance: DAPAGLIFLOZIN
     Indication: Hypoglycaemia
     Route: 048
     Dates: start: 20230117, end: 20230202

REACTIONS (1)
  - Urinary tract discomfort [Recovering/Resolving]

NARRATIVE: CASE EVENT DATE: 20230202
